FAERS Safety Report 14786005 (Version 1)
Quarter: 2018Q2

REPORT INFORMATION
  Report Type: Spontaneous
  Country: CN (occurrence: CN)
  Receive Date: 20180420
  Receipt Date: 20180420
  Transmission Date: 20180711
  Serious: Yes (Hospitalization)
  Sender: FDA-Public Use
  Company Number: CN-MYLANLABS-2018M1024548

PATIENT
  Age: 52 Year
  Sex: Male

DRUGS (3)
  1. PREDNISOLONE. [Suspect]
     Active Substance: PREDNISOLONE
     Indication: BACK PAIN
     Dosage: TOTAL VOLUME OF INJECTION 35 ML
     Route: 008
  2. LIDOCAINE HYDROCHLORIDE. [Concomitant]
     Active Substance: LIDOCAINE HYDROCHLORIDE
     Indication: BACK PAIN
     Dosage: TOTAL VOLUME OF INJECTION 35 ML
     Route: 008
  3. NORMAL SALINE [Concomitant]
     Active Substance: SODIUM CHLORIDE
     Indication: BACK PAIN
     Dosage: TOTAL VOLUME OF INJECTION 35 ML
     Route: 008

REACTIONS (4)
  - Spinal cord infarction [Recovering/Resolving]
  - Myelitis [Recovering/Resolving]
  - Peripheral swelling [Unknown]
  - Diplegia [Recovering/Resolving]
